FAERS Safety Report 23722058 (Version 1)
Quarter: 2024Q2

REPORT INFORMATION
  Report Type: Spontaneous
  Country: US (occurrence: US)
  Receive Date: 20240409
  Receipt Date: 20240409
  Transmission Date: 20240716
  Serious: Yes (Hospitalization)
  Sender: FDA-Public Use
  Company Number: US-ANIPHARMA-2024-US-018748

PATIENT
  Sex: Female

DRUGS (13)
  1. CORTICOTROPIN [Suspect]
     Active Substance: CORTICOTROPIN
     Indication: Multiple sclerosis
     Dosage: 80 UNITS (1ML) SUBCUTANEOUSLY ONCE DAILY X 21 DAYS
     Route: 058
  2. POTASSIUM IODIDE [Concomitant]
     Active Substance: POTASSIUM IODIDE
  3. GABAPENTIN [Concomitant]
     Active Substance: GABAPENTIN
  4. B12 [Concomitant]
  5. METOPROLOL SUCCINATE [Concomitant]
     Active Substance: METOPROLOL SUCCINATE
  6. VUMERITY [Suspect]
     Active Substance: DIROXIMEL FUMARATE
  7. TIZANIDINE HYDROCHLORIDE [Concomitant]
     Active Substance: TIZANIDINE HYDROCHLORIDE
  8. BACLOFEN [Concomitant]
     Active Substance: BACLOFEN
  9. NORTRIPTYLINE HYDROCHLORIDE [Concomitant]
     Active Substance: NORTRIPTYLINE HYDROCHLORIDE
  10. DULOXETINE HYDROCHLORIDE [Concomitant]
     Active Substance: DULOXETINE HYDROCHLORIDE
  11. OXYCODONE HYDROCHLORIDE [Concomitant]
     Active Substance: OXYCODONE HYDROCHLORIDE
  12. MULTIPLE VITAMIN/IRON [Concomitant]
  13. VITAMIN C [Concomitant]
     Active Substance: ASCORBIC ACID

REACTIONS (1)
  - Hospitalisation [Unknown]
